FAERS Safety Report 4364536-4 (Version None)
Quarter: 2004Q2

REPORT INFORMATION
  Report Type: 
  Country: None (occurrence: None)
  Receive Date: 20040519
  Receipt Date: 20040505
  Transmission Date: 20050107
  Serious: Yes (Other)
  Sender: FDA-Public Use
  Company Number: 2004-DE-02580GD

PATIENT
  Age: 68 Year
  Sex: Male

DRUGS (2)
  1. PRAMIPEXOLE (PRAMIPEXOLE DIHYDROCHLORIDE) (NR) [Suspect]
     Indication: PARKINSON'S DISEASE
     Dosage: 2.1 MG (NR) ; PO
     Route: 048
  2. L-DOPA (LEVODOPA) (NR) [Suspect]
     Dosage: 1000 MG  (NR) ; PO
     Route: 048

REACTIONS (5)
  - AKINESIA [None]
  - DRUG INEFFECTIVE [None]
  - DYSKINESIA [None]
  - MUSCLE RIGIDITY [None]
  - TREMOR [None]
